FAERS Safety Report 15430409 (Version 1)
Quarter: 2018Q4

REPORT INFORMATION
  Report Type: Spontaneous
  Country: US (occurrence: US)
  Receive Date: 20180926
  Receipt Date: 20180926
  Transmission Date: 20190204
  Serious: No
  Sender: FDA-Public Use
  Company Number: US-ASSERTIO THERAPEUTICS, INC.-US-2018DEP001522

PATIENT

DRUGS (6)
  1. GRALISE [Suspect]
     Active Substance: GABAPENTIN
     Indication: MONONEUROPATHY
     Dosage: GREATER THAN 900 MG
     Route: 048
     Dates: start: 2018, end: 2018
  2. VITAMIN B12 [Concomitant]
     Active Substance: CYANOCOBALAMIN
     Indication: PRODUCT USED FOR UNKNOWN INDICATION
  3. CALTRATE                           /00944201/ [Concomitant]
     Active Substance: CALCIUM CARBONATE\CHOLECALCIFEROL
     Indication: PRODUCT USED FOR UNKNOWN INDICATION
  4. CALCIUM [Concomitant]
     Active Substance: CALCIUM
     Indication: PRODUCT USED FOR UNKNOWN INDICATION
  5. GRALISE [Suspect]
     Active Substance: GABAPENTIN
     Dosage: 900 MG, QD
     Route: 048
     Dates: start: 20180427, end: 2018
  6. GRALISE [Suspect]
     Active Substance: GABAPENTIN
     Dosage: 900 MG, QD
     Route: 048
     Dates: start: 2018

REACTIONS (2)
  - Eye swelling [Recovered/Resolved]
  - Product use in unapproved indication [Unknown]

NARRATIVE: CASE EVENT DATE: 20180427
